FAERS Safety Report 9892889 (Version 1)
Quarter: 2014Q1

REPORT INFORMATION
  Report Type: Spontaneous
  Country: US (occurrence: US)
  Receive Date: 20140213
  Receipt Date: 20140213
  Transmission Date: 20141002
  Serious: No
  Sender: FDA-Public Use
  Company Number: US-009507513-1402USA005478

PATIENT
  Sex: Male

DRUGS (1)
  1. PROVENTIL [Suspect]
     Dosage: 90 MICROGRAM, AS NEEDED, ORAL INHALATION
     Route: 055
     Dates: start: 201312

REACTIONS (6)
  - Accidental exposure to product [Unknown]
  - Product quality issue [Unknown]
  - Underdose [Unknown]
  - Inappropriate schedule of drug administration [Unknown]
  - Medication error [Unknown]
  - No adverse event [Unknown]
